FAERS Safety Report 22787265 (Version 2)
Quarter: 2023Q4

REPORT INFORMATION
  Report Type: Spontaneous
  Country: AT (occurrence: AT)
  Receive Date: 20230804
  Receipt Date: 20231017
  Transmission Date: 20240110
  Serious: Yes (Other)
  Sender: FDA-Public Use
  Company Number: AT-AMGEN-AUTSP2023135987

PATIENT
  Age: 41 Year
  Sex: Female

DRUGS (14)
  1. XGEVA [Suspect]
     Active Substance: DENOSUMAB
     Indication: Invasive ductal breast carcinoma
     Dosage: UNK
     Route: 065
  2. XGEVA [Suspect]
     Active Substance: DENOSUMAB
     Indication: Metastases to bone
  3. TRASTUZUMAB [Suspect]
     Active Substance: TRASTUZUMAB
     Indication: Invasive ductal breast carcinoma
     Dosage: UNK
     Route: 065
  4. HERCEPTIN [Suspect]
     Active Substance: TRASTUZUMAB
     Indication: Invasive ductal breast carcinoma
     Dosage: 520 MILLIGRAM (IN POLYOLEFIN MACOPHARMA INFUSION IN NACL 0.9% 250 ML BAG OVER 1 HOUR 30 MIN)
     Route: 065
     Dates: start: 20181016
  5. HERCEPTIN [Suspect]
     Active Substance: TRASTUZUMAB
     Dosage: 520 MILLIGRAM (IN POLYOLEFIN MACOPHARMA INFUSION IN NACL 0.9% 250 ML BAG OVER 1 HOUR 30 MIN)
     Route: 065
     Dates: start: 20210127
  6. PERJETA [Suspect]
     Active Substance: PERTUZUMAB
     Indication: Invasive ductal breast carcinoma
     Dosage: 840 MILLIGRAM (IN NACL 0.9% 250 ML SACHET POLYOLEFIN MACOPHARMA INFUSION OVER 1 H)
     Route: 065
     Dates: start: 20200205
  7. KADCYLA [Suspect]
     Active Substance: ADO-TRASTUZUMAB EMTANSINE
     Indication: Invasive ductal breast carcinoma
     Dosage: 244.8 MILLIGRAM
     Route: 065
     Dates: start: 20200227, end: 20200724
  8. ENHERTU [Concomitant]
     Active Substance: FAM-TRASTUZUMAB DERUXTECAN-NXKI
     Dosage: UNK
     Dates: start: 202111
  9. PERTUZUMAB [Concomitant]
     Active Substance: PERTUZUMAB
     Dosage: UNK
     Route: 065
  10. CAPECITABINE [Concomitant]
     Active Substance: CAPECITABINE
     Indication: Invasive ductal breast carcinoma
     Dosage: UNK
     Route: 065
     Dates: start: 2021
  11. PACLITAXEL [Concomitant]
     Active Substance: PACLITAXEL
     Indication: Invasive ductal breast carcinoma
     Dosage: UNK
     Route: 065
  12. LAPATINIB [Concomitant]
     Active Substance: LAPATINIB
     Dosage: UNK
     Route: 065
  13. TUCATINIB [Concomitant]
     Active Substance: TUCATINIB
     Indication: Invasive ductal breast carcinoma
     Dosage: UNK
     Route: 065
     Dates: start: 2021
  14. VINORELBINE [Concomitant]
     Active Substance: VINORELBINE TARTRATE
     Indication: Invasive ductal breast carcinoma
     Dosage: UNK
     Route: 065
     Dates: start: 2021

REACTIONS (5)
  - Metastases to skin [Unknown]
  - Metastases to bone [Unknown]
  - Disease progression [Unknown]
  - Metastases to central nervous system [Unknown]
  - Left ventricular dysfunction [Unknown]

NARRATIVE: CASE EVENT DATE: 20200201
